FAERS Safety Report 17178881 (Version 4)
Quarter: 2020Q1

REPORT INFORMATION
  Report Type: Spontaneous
  Country: GB (occurrence: GB)
  Receive Date: 20191219
  Receipt Date: 20200109
  Transmission Date: 20200409
  Serious: Yes (Death, Hospitalization, Other)
  Sender: FDA-Public Use
  Company Number: GB-MYLANLABS-2019M1125545

PATIENT
  Sex: Male

DRUGS (2)
  1. CLOZARIL [Suspect]
     Active Substance: CLOZAPINE
     Indication: SCHIZOPHRENIA
     Dosage: UNK
     Route: 048
     Dates: start: 20100527, end: 20191121
  2. VALPROIC ACID. [Suspect]
     Active Substance: VALPROIC ACID
     Indication: PRODUCT USED FOR UNKNOWN INDICATION
     Dosage: UNK

REACTIONS (9)
  - Pneumonia [Fatal]
  - Constipation [Unknown]
  - Food refusal [Unknown]
  - Terminal state [Fatal]
  - Loss of consciousness [Unknown]
  - Platelet count decreased [Recovered/Resolved]
  - General physical condition abnormal [Fatal]
  - Depression [Unknown]
  - Learning disability [Unknown]
